FAERS Safety Report 18024471 (Version 1)
Quarter: 2020Q3

REPORT INFORMATION
  Report Type: Spontaneous
  Country: US (occurrence: US)
  Receive Date: 20200714
  Receipt Date: 20200714
  Transmission Date: 20201103
  Serious: Yes (Hospitalization)
  Sender: FDA-Public Use
  Company Number: None

PATIENT
  Age: 78 Year
  Sex: Female
  Weight: 61.5 kg

DRUGS (1)
  1. YESCARTA [Suspect]
     Active Substance: AXICABTAGENE CILOLEUCEL
     Indication: DIFFUSE LARGE B-CELL LYMPHOMA
     Dosage: ?          OTHER FREQUENCY:ONCE;?
     Route: 042
     Dates: start: 20200609, end: 20200609

REACTIONS (11)
  - Peroneal nerve palsy [None]
  - Vomiting [None]
  - Neurotoxicity [None]
  - Infusion related reaction [None]
  - Nausea [None]
  - Muscular weakness [None]
  - Hypoxia [None]
  - Cytokine release syndrome [None]
  - Pyrexia [None]
  - Chills [None]
  - Fatigue [None]

NARRATIVE: CASE EVENT DATE: 20200609
